FAERS Safety Report 16541919 (Version 2)
Quarter: 2019Q3

REPORT INFORMATION
  Report Type: Spontaneous
  Country: BE (occurrence: BE)
  Receive Date: 20190708
  Receipt Date: 20190731
  Transmission Date: 20191004
  Serious: Yes (Death)
  Sender: FDA-Public Use
  Company Number: BE-JNJFOC-20190629724

PATIENT
  Age: 22 Year
  Sex: Male

DRUGS (9)
  1. MOVICOL [Concomitant]
     Active Substance: POLYETHYLENE GLYCOL 3350\POTASSIUM CHLORIDE\SODIUM BICARBONATE\SODIUM CHLORIDE
     Route: 065
  2. RISPERDAL [Suspect]
     Active Substance: RISPERIDONE
     Indication: PRODUCT USED FOR UNKNOWN INDICATION
     Route: 065
  3. LACTULOSE. [Concomitant]
     Active Substance: LACTULOSE
     Dates: start: 20150317
  4. LAMICTAL [Concomitant]
     Active Substance: LAMOTRIGINE
     Indication: PRODUCT USED FOR UNKNOWN INDICATION
     Dosage: UP TO 25-JUN-18: 25 MG 3 TIMES PER DAY; FROM 26-JUN-18 TO 20-SEP-18: 50 MG 1PER DAY + 25MG 2 TIMES P
     Route: 065
  5. D-CURE [Concomitant]
     Active Substance: CHOLECALCIFEROL
  6. TRAZODONE [Concomitant]
     Active Substance: TRAZODONE HYDROCHLORIDE
     Dates: start: 20170831
  7. RISPERDAL [Suspect]
     Active Substance: RISPERIDONE
     Dosage: FROM 15-SEP-17 TO 24-MAY-17: 2 MG 1/DAY + 3MG 2/DAY; SINCE 25-MAY-18: 2 MG 3/DAY
     Route: 065
  8. MOGADON [Concomitant]
     Active Substance: NITRAZEPAM
     Route: 065
  9. SEROQUEL [Concomitant]
     Active Substance: QUETIAPINE FUMARATE
     Route: 065
     Dates: start: 20161004

REACTIONS (2)
  - Hypothermia [Fatal]
  - Bradycardia [Fatal]

NARRATIVE: CASE EVENT DATE: 20180930
